FAERS Safety Report 17865599 (Version 1)
Quarter: 2020Q2

REPORT INFORMATION
  Report Type: Spontaneous
  Country: US (occurrence: US)
  Receive Date: 20200605
  Receipt Date: 20200605
  Transmission Date: 20200714
  Serious: Yes (Other)
  Sender: FDA-Public Use
  Company Number: None

PATIENT
  Age: 80 Year
  Sex: Female
  Weight: 86.2 kg

DRUGS (2)
  1. REMDESIVIR. [Suspect]
     Active Substance: REMDESIVIR
     Indication: DEPENDENCE ON RESPIRATOR
     Route: 042
     Dates: start: 20200518, end: 20200523
  2. REMDESIVIR. [Suspect]
     Active Substance: REMDESIVIR
     Indication: SARS-COV-2 TEST POSITIVE
     Route: 042
     Dates: start: 20200518, end: 20200523

REACTIONS (1)
  - Leukocytosis [None]

NARRATIVE: CASE EVENT DATE: 20200524
